FAERS Safety Report 8519318-6 (Version None)
Quarter: 2012Q3

REPORT INFORMATION
  Report Type: 
  Country: None (occurrence: None)
  Receive Date: 20120718
  Receipt Date: 20120709
  Transmission Date: 20120928
  Serious: Yes (Other)
  Sender: FDA-Public Use
  Company Number: CA-ROCHE-1089046

PATIENT
  Sex: Female

DRUGS (4)
  1. PREDNISONE TAB [Concomitant]
  2. FOLIC ACID [Concomitant]
  3. MABTHERA [Suspect]
     Indication: RHEUMATOID ARTHRITIS
     Route: 042
     Dates: start: 20110818
  4. METHOTREXATE [Concomitant]

REACTIONS (6)
  - LIGAMENT SPRAIN [None]
  - FALL [None]
  - MASS [None]
  - VISUAL IMPAIRMENT [None]
  - HEADACHE [None]
  - NECK PAIN [None]
